FAERS Safety Report 6548234-4 (Version None)
Quarter: 2010Q1

REPORT INFORMATION
  Report Type: 
  Country: None (occurrence: None)
  Receive Date: 20100124
  Receipt Date: 20090506
  Transmission Date: 20100710
  Serious: No
  Sender: FDA-Public Use
  Company Number: US-ALLERGAN-0903944US

PATIENT
  Age: 82 Year
  Sex: Female

DRUGS (4)
  1. RESTASIS [Suspect]
     Indication: DRY EYE
     Dosage: 1 GTT, BID
     Route: 047
     Dates: start: 20090318, end: 20090320
  2. RESTASIS [Suspect]
     Dosage: UNK, UNK
     Route: 047
     Dates: end: 20080501
  3. PREMPRO [Concomitant]
  4. FOSAMAX [Concomitant]

REACTIONS (3)
  - EYE DISORDER [None]
  - EYE IRRITATION [None]
  - KERATITIS [None]
